FAERS Safety Report 8987074 (Version 3)
Quarter: 2016Q1

REPORT INFORMATION
  Report Type: Spontaneous
  Country: FR (occurrence: FR)
  Receive Date: 20121227
  Receipt Date: 20160202
  Transmission Date: 20160526
  Serious: Yes (Hospitalization, Other)
  Sender: FDA-Public Use
  Company Number: FR-BRISTOL-MYERS SQUIBB COMPANY-17230780

PATIENT
  Age: 51 Year
  Sex: Male

DRUGS (16)
  1. COUMADIN [Suspect]
     Active Substance: WARFARIN SODIUM
     Indication: NEPHROTIC SYNDROME
     Dosage: UNK
     Route: 048
     Dates: start: 201210, end: 20121031
  2. CLAMOXYL [Interacting]
     Active Substance: AMOXICILLIN\CLAVULANIC ACID
     Indication: HELICOBACTER INFECTION
     Dosage: UNK
     Route: 065
     Dates: start: 201210
  3. ARANESP [Concomitant]
     Active Substance: DARBEPOETIN ALFA
     Indication: PRODUCT USED FOR UNKNOWN INDICATION
     Dosage: 50 ?G, QWK
     Route: 065
  4. FOLIC ACID. [Concomitant]
     Active Substance: FOLIC ACID
     Indication: PRODUCT USED FOR UNKNOWN INDICATION
     Dosage: 5 MG, BID
     Route: 065
  5. PIPAMPERONE [Concomitant]
     Active Substance: PIPAMPERONE
     Indication: PRODUCT USED FOR UNKNOWN INDICATION
     Dosage: 40 MG, BID
     Route: 065
  6. ATROVENT [Concomitant]
     Active Substance: IPRATROPIUM BROMIDE
     Indication: PRODUCT USED FOR UNKNOWN INDICATION
     Dosage: UNK UNK, TID
     Route: 065
  7. ESOMEPRAZOLE [Concomitant]
     Active Substance: ESOMEPRAZOLE
     Indication: PRODUCT USED FOR UNKNOWN INDICATION
     Dosage: 40 MG, QD
     Route: 065
  8. AMLOR [Concomitant]
     Active Substance: AMLODIPINE BESYLATE
     Indication: PRODUCT USED FOR UNKNOWN INDICATION
     Dosage: 5 MG, QD
     Route: 065
  9. PREDNISOLONE. [Concomitant]
     Active Substance: PREDNISOLONE
     Indication: PRODUCT USED FOR UNKNOWN INDICATION
     Dosage: 70 MG, QD
     Route: 065
  10. OXAZEPAM. [Concomitant]
     Active Substance: OXAZEPAM
     Indication: PRODUCT USED FOR UNKNOWN INDICATION
     Dosage: 1 DF, QD
     Route: 065
  11. RULID [Interacting]
     Active Substance: ROXITHROMYCIN
     Indication: HELICOBACTER INFECTION
     Dosage: UNK
     Route: 065
     Dates: start: 201210
  12. TRIFLUCAN [Interacting]
     Active Substance: FLUCONAZOLE
     Indication: OESOPHAGEAL CANDIDIASIS
     Dosage: UNK
     Route: 048
     Dates: start: 201210, end: 20121031
  13. CORTANCYL [Interacting]
     Active Substance: PREDNISONE
     Indication: NEPHROTIC SYNDROME
     Dosage: 1 MG/KG, UNK
     Route: 048
     Dates: start: 201210
  14. VITAMIN B1 + B6 [Concomitant]
     Indication: PRODUCT USED FOR UNKNOWN INDICATION
     Dosage: UNK UNK, TID
     Route: 065
  15. SALBUTAMOL [Concomitant]
     Active Substance: ALBUTEROL
     Indication: PRODUCT USED FOR UNKNOWN INDICATION
     Route: 065
  16. TAMSULOSIN [Concomitant]
     Active Substance: TAMSULOSIN
     Indication: PRODUCT USED FOR UNKNOWN INDICATION
     Dosage: .4 MG, QD
     Route: 065

REACTIONS (6)
  - Renal haemorrhage [Unknown]
  - International normalised ratio increased [Recovered/Resolved]
  - Overdose [Unknown]
  - Acute kidney injury [Recovering/Resolving]
  - Drug interaction [Unknown]
  - Off label use [Unknown]

NARRATIVE: CASE EVENT DATE: 201211
